FAERS Safety Report 6242642-7 (Version None)
Quarter: 2009Q2

REPORT INFORMATION
  Report Type: 
  Country: None (occurrence: None)
  Receive Date: 20090622
  Receipt Date: 20090622
  Transmission Date: 20091009
  Serious: No
  Sender: FDA-Public Use
  Company Number: None

PATIENT
  Age: 55 Year
  Sex: Male
  Weight: 74.8435 kg

DRUGS (2)
  1. PREDNISOLONE [Suspect]
     Indication: POSTOPERATIVE CARE
     Dosage: 1 DROP 4 TIMES DAILY OPHTHALMIC
     Route: 047
     Dates: start: 20090610, end: 20090618
  2. ACULAR-LS EYE DROPS [Concomitant]

REACTIONS (3)
  - DRUG EFFECT DECREASED [None]
  - EYE IRRITATION [None]
  - PRODUCT SUBSTITUTION ISSUE [None]
